FAERS Safety Report 7063072-4 (Version None)
Quarter: 2010Q4

REPORT INFORMATION
  Report Type: 
  Country: None (occurrence: None)
  Receive Date: 20101026
  Receipt Date: 20100422
  Transmission Date: 20110411
  Serious: Yes (Other)
  Sender: FDA-Public Use
  Company Number: US-PFIZER INC-2010051412

PATIENT
  Sex: Male
  Weight: 92.971 kg

DRUGS (5)
  1. LIPITOR [Suspect]
     Indication: BLOOD CHOLESTEROL INCREASED
     Dosage: 40 MG, 1X/DAY
     Route: 048
     Dates: start: 20050201, end: 20100401
  2. METOPROLOL [Concomitant]
     Indication: BLOOD PRESSURE INCREASED
     Dosage: 50 MG, 1X/DAY
  3. AMLODIPINE BESILATE [Concomitant]
     Indication: BLOOD PRESSURE INCREASED
     Dosage: 2.5 MG, 1X/DAY
  4. LEVOTHYROXINE [Concomitant]
     Indication: THYROID DISORDER
     Dosage: 100 UG, 1X/DAY
  5. DORZOLAMIDE HYDROCHLORIDE AND TIMOLOL MALEATE [Concomitant]
     Indication: GLAUCOMA
     Dosage: UNK

REACTIONS (1)
  - MUSCULAR WEAKNESS [None]
